FAERS Safety Report 24315889 (Version 1)
Quarter: 2024Q3

REPORT INFORMATION
  Report Type: Spontaneous
  Country: AU (occurrence: AU)
  Receive Date: 20240913
  Receipt Date: 20240913
  Transmission Date: 20241016
  Serious: Yes (Other)
  Sender: RANBAXY
  Company Number: AU-SUN PHARMACEUTICAL INDUSTRIES LTD-2024R1-467383

PATIENT
  Sex: Female

DRUGS (1)
  1. CIPROFLOXACIN [Suspect]
     Active Substance: CIPROFLOXACIN
     Indication: Rash
     Dosage: UNK
     Route: 065
     Dates: start: 202311

REACTIONS (15)
  - Neuropathy peripheral [Unknown]
  - Tremor [Unknown]
  - Anxiety [Unknown]
  - Depression [Unknown]
  - Disturbance in attention [Unknown]
  - Hypotension [Unknown]
  - Insomnia [Unknown]
  - Nausea [Unknown]
  - Panic attack [Unknown]
  - Product communication issue [Unknown]
  - Product complaint [Unknown]
  - Product prescribing issue [Unknown]
  - Product quality issue [Unknown]
  - Product use complaint [Unknown]
  - Tachycardia [Unknown]
